FAERS Safety Report 7957705-5 (Version None)
Quarter: 2011Q4

REPORT INFORMATION
  Report Type: 
  Country: None (occurrence: None)
  Receive Date: 20111205
  Receipt Date: 20111129
  Transmission Date: 20120403
  Serious: Yes (Hospitalization)
  Sender: FDA-Public Use
  Company Number: PHEH2011US04973

PATIENT
  Sex: Male
  Weight: 95.238 kg

DRUGS (2)
  1. EXJADE [Suspect]
     Indication: IRON OVERLOAD
  2. EXJADE [Suspect]
     Indication: MYELOPROLIFERATIVE DISORDER
     Dosage: 500 MG, BID
     Route: 048
     Dates: start: 20090319

REACTIONS (2)
  - PNEUMONIA [None]
  - BLOOD POTASSIUM INCREASED [None]
